FAERS Safety Report 22122013 (Version 1)
Quarter: 2023Q1

REPORT INFORMATION
  Report Type: Spontaneous
  Country: CA (occurrence: CA)
  Receive Date: 20230321
  Receipt Date: 20230321
  Transmission Date: 20230417
  Serious: Yes (Other)
  Sender: FDA-Public Use
  Company Number: CA-APIL-2308481US

PATIENT
  Sex: Female
  Weight: 56 kg

DRUGS (4)
  1. MESALAMINE [Suspect]
     Active Substance: MESALAMINE
     Indication: Product used for unknown indication
     Dosage: 1 DF, QD
     Route: 048
     Dates: start: 20230213
  2. MESALAMINE [Suspect]
     Active Substance: MESALAMINE
     Dosage: 4 G, QD
     Route: 048
     Dates: start: 202206, end: 202209
  3. ENTYVIO [Suspect]
     Active Substance: VEDOLIZUMAB
     Indication: Product used for unknown indication
     Dosage: UNK
     Dates: start: 2022, end: 2022
  4. PREDNISONE [Concomitant]
     Active Substance: PREDNISONE
     Dosage: 2 MG, QD
     Route: 048

REACTIONS (3)
  - Wisdom teeth removal [Unknown]
  - Adverse event [Unknown]
  - Drug ineffective [Unknown]

NARRATIVE: CASE EVENT DATE: 20220101
